FAERS Safety Report 4776437-8 (Version None)
Quarter: 2005Q3

REPORT INFORMATION
  Report Type: 
  Country: None (occurrence: None)
  Receive Date: 20050922
  Receipt Date: 20050519
  Transmission Date: 20060218
  Serious: Yes (Life-Threatening, Hospitalization)
  Sender: FDA-Public Use
  Company Number: NL-ABBOTT-05P-114-0300911-00

PATIENT
  Sex: Male

DRUGS (3)
  1. HYTRIN [Suspect]
     Indication: BENIGN PROSTATIC HYPERPLASIA
     Route: 048
     Dates: start: 20050429, end: 20050429
  2. HYTRIN [Suspect]
     Route: 048
     Dates: start: 20050401, end: 20050415
  3. HYTRIN [Suspect]
     Route: 048
     Dates: start: 20050415, end: 20050429

REACTIONS (4)
  - ERECTILE DYSFUNCTION [None]
  - METASTASES TO SKIN [None]
  - NON-SMALL CELL LUNG CANCER STAGE IV [None]
  - PRIAPISM [None]
